FAERS Safety Report 24716777 (Version 3)
Quarter: 2025Q1

REPORT INFORMATION
  Report Type: Spontaneous
  Country: US (occurrence: US)
  Receive Date: 20241210
  Receipt Date: 20250106
  Transmission Date: 20250409
  Serious: Yes (Other)
  Sender: BAYER HEALTHCARE PHARMACEUTICALS INC.
  Company Number: US-BAYER-2024A171737

PATIENT
  Age: 55 Year
  Sex: Female

DRUGS (1)
  1. MIRENA [Suspect]
     Active Substance: LEVONORGESTREL
     Indication: Contraception
     Dosage: 20?G/DAY
     Route: 015
     Dates: start: 2014, end: 20241114

REACTIONS (4)
  - Device breakage [Not Recovered/Not Resolved]
  - Complication of device removal [None]
  - Device use issue [None]
  - Device use issue [None]

NARRATIVE: CASE EVENT DATE: 20241114
